FAERS Safety Report 4396968-2 (Version None)
Quarter: 2004Q2

REPORT INFORMATION
  Report Type: 
  Country: None (occurrence: None)
  Receive Date: 20040621
  Receipt Date: 20031231
  Transmission Date: 20050107
  Serious: Yes (Death, Other)
  Sender: FDA-Public Use
  Company Number: USA-2003-0012371

PATIENT
  Age: 21 Year
  Sex: Male

DRUGS (5)
  1. OXYCONTIN [Suspect]
     Indication: PAIN
     Dosage: UNK UNK, UNK; UNKNOWN
     Route: 065
  2. ROXICET [Suspect]
     Indication: PAIN
     Dosage: 5 MG DAILY; UNKNOWN
     Route: 065
  3. ALPRAZOLAM [Suspect]
     Dosage: UNK UNK, UNK; UNKNOWN
     Route: 065
  4. ACETAMINOPHEN [Suspect]
     Dosage: UNK UNK, UNK; UNKNOWN
     Route: 065
  5. MARIJUANA (CANNABIS) [Suspect]
     Dosage: UNK UNK, UNK; UNNOWN
     Route: 065

REACTIONS (4)
  - ACCIDENTAL OVERDOSE [None]
  - DRUG ABUSER [None]
  - DRUG DEPENDENCE [None]
  - MULTIPLE DRUG OVERDOSE [None]
